FAERS Safety Report 10638391 (Version 2)
Quarter: 2014Q4

REPORT INFORMATION
  Report Type: Spontaneous
  Country: PL (occurrence: PL)
  Receive Date: 20141208
  Receipt Date: 20141218
  Transmission Date: 20150529
  Serious: Yes (Death, Life-Threatening, Hospitalization, Other)
  Sender: FDA-Public Use
  Company Number: PL-B.I. PHARMACEUTICALS,INC./RIDGEFIELD-2014-BI-58991PN

PATIENT
  Age: 63 Year
  Sex: Male
  Weight: 160 kg

DRUGS (1)
  1. PRADAXA [Suspect]
     Active Substance: DABIGATRAN ETEXILATE MESYLATE
     Indication: ATRIAL FIBRILLATION
     Dosage: 300 MG
     Route: 048
     Dates: start: 20141114, end: 20141204

REACTIONS (3)
  - Cardiac arrest [Fatal]
  - Gastrointestinal haemorrhage [Unknown]
  - Brain injury [Fatal]

NARRATIVE: CASE EVENT DATE: 20141204
